FAERS Safety Report 8461266-4 (Version None)
Quarter: 2012Q2

REPORT INFORMATION
  Report Type: 
  Country: None (occurrence: None)
  Receive Date: 20120619
  Receipt Date: 20120619
  Transmission Date: 20120825
  Serious: Yes (Hospitalization, Other)
  Sender: FDA-Public Use
  Company Number: None

PATIENT
  Sex: Female
  Weight: 64.8644 kg

DRUGS (1)
  1. MOVIPREP [Suspect]
     Indication: COLONOSCOPY
     Dosage: GALLON 2 TIMES OVER 8 HRS PO
     Route: 048
     Dates: start: 20120503, end: 20120503

REACTIONS (5)
  - DEHYDRATION [None]
  - INFUSION SITE HAEMATOMA [None]
  - VASCULAR ACCESS COMPLICATION [None]
  - PAIN IN EXTREMITY [None]
  - VEIN DISORDER [None]
